FAERS Safety Report 15616408 (Version 1)
Quarter: 2018Q4

REPORT INFORMATION
  Report Type: Spontaneous
  Country: US (occurrence: US)
  Receive Date: 20181108
  Receipt Date: 20181108
  Transmission Date: 20190205
  Serious: No
  Sender: FDA-Public Use
  Company Number: None

PATIENT
  Age: 62 Year
  Sex: Female

DRUGS (2)
  1. DOXYCYLINE [Concomitant]
     Active Substance: DOXYCYCLINE
  2. MAVYRET [Suspect]
     Active Substance: GLECAPREVIR\PIBRENTASVIR
     Indication: HEPATITIS C
     Dates: start: 20181019

REACTIONS (3)
  - Diarrhoea [None]
  - Nausea [None]
  - Eye infection [None]

NARRATIVE: CASE EVENT DATE: 20181009
